FAERS Safety Report 8764087 (Version 1)
Quarter: 2012Q4

REPORT INFORMATION
  Report Type: 
  Country: US (occurrence: US)
  Receive Date: 20120831
  Receipt Date: 20120831
  Transmission Date: 20130627
  Serious: Yes (Hospitalization)
  Sender: FDA-Public Use
  Company Number: US-TEVA-356024USA

PATIENT
  Age: 50 Year
  Sex: Female

DRUGS (1)
  1. COPAXONE [Suspect]
     Indication: MULTIPLE SCLEROSIS
     Dates: start: 20090403

REACTIONS (7)
  - Dehydration [Unknown]
  - Depression [Unknown]
  - Anxiety [Unknown]
  - Menopause [Unknown]
  - Blood potassium decreased [Unknown]
  - Heart rate increased [Unknown]
  - Blood pressure increased [Unknown]
